FAERS Safety Report 7543716-0 (Version None)
Quarter: 2011Q2

REPORT INFORMATION
  Report Type: 
  Country: None (occurrence: None)
  Receive Date: 20110613
  Receipt Date: 20030806
  Transmission Date: 20111010
  Serious: Yes (Death)
  Sender: FDA-Public Use
  Company Number: PHNR2003AU01171

PATIENT

DRUGS (1)
  1. NEORAL [Suspect]
     Indication: TRANSPLANT

REACTIONS (1)
  - DEATH [None]
